FAERS Safety Report 24792081 (Version 2)
Quarter: 2025Q1

REPORT INFORMATION
  Report Type: Spontaneous
  Country: JP (occurrence: JP)
  Receive Date: 20241231
  Receipt Date: 20250206
  Transmission Date: 20250409
  Serious: Yes (Other)
  Sender: ROCHE
  Company Number: JP-ROCHE-10000166488

PATIENT
  Age: 6 Decade
  Sex: Female
  Weight: 47 kg

DRUGS (8)
  1. BEVACIZUMAB [Suspect]
     Active Substance: BEVACIZUMAB
     Indication: Hepatocellular carcinoma
     Route: 065
  2. ATEZOLIZUMAB [Suspect]
     Active Substance: ATEZOLIZUMAB
     Indication: Hepatocellular carcinoma
     Route: 065
  3. SOFOSBUVIR [Concomitant]
     Active Substance: SOFOSBUVIR
  4. LEDIPASVIR [Concomitant]
     Active Substance: LEDIPASVIR
  5. LENVATINIB [Concomitant]
     Active Substance: LENVATINIB
  6. DURVALUMAB [Concomitant]
     Active Substance: DURVALUMAB
  7. TREMELIMUMAB [Concomitant]
     Active Substance: TREMELIMUMAB
  8. EPIRUBICIN [Concomitant]
     Active Substance: EPIRUBICIN

REACTIONS (2)
  - Disease progression [Unknown]
  - Palmar-plantar erythrodysaesthesia syndrome [Unknown]
